FAERS Safety Report 8182019-0 (Version None)
Quarter: 2012Q1

REPORT INFORMATION
  Report Type: 
  Country: None (occurrence: None)
  Receive Date: 20120302
  Receipt Date: 20120222
  Transmission Date: 20120608
  Serious: Yes (Other)
  Sender: FDA-Public Use
  Company Number: PHHY2011US58963

PATIENT
  Sex: Male

DRUGS (6)
  1. ALLOPURINOL [Concomitant]
  2. BYSTOLIC [Concomitant]
  3. MULTI-VITAMINS [Concomitant]
  4. FISH OIL [Concomitant]
  5. GLEEVEC [Suspect]
     Indication: CHRONIC MYELOID LEUKAEMIA
     Dosage: 400 MG, DAILY
     Route: 048
     Dates: start: 20091008
  6. DIOVAN HCT [Concomitant]

REACTIONS (2)
  - OCULAR HYPERAEMIA [None]
  - MUSCLE SPASMS [None]
